FAERS Safety Report 9665822 (Version 1)
Quarter: 2013Q4

REPORT INFORMATION
  Report Type: Report from Study
  Country: ES (occurrence: ES)
  Receive Date: 20131104
  Receipt Date: 20131104
  Transmission Date: 20140711
  Serious: Yes (Death, Other)
  Sender: FDA-Public Use
  Company Number: ES-ASTELLAS-2013EU009450

PATIENT
  Age: 2 Year
  Sex: 0

DRUGS (6)
  1. TACROLIMUS SYSTEMIC [Suspect]
     Indication: IMMUNOSUPPRESSION
     Dosage: UNK
     Route: 048
  2. TACROLIMUS SYSTEMIC [Suspect]
     Indication: LIVER TRANSPLANT
  3. MYCOPHENOLATE MOFETIL [Suspect]
     Indication: IMMUNOSUPPRESSION
     Dosage: UNK
     Route: 065
  4. MYCOPHENOLATE MOFETIL [Suspect]
     Indication: LIVER TRANSPLANT
  5. CORTICOSTEROID NOS [Suspect]
     Indication: IMMUNOSUPPRESSION
     Dosage: UNK
     Route: 065
  6. CORTICOSTEROID NOS [Suspect]
     Indication: LIVER TRANSPLANT

REACTIONS (3)
  - Liver disorder [Fatal]
  - Hypoxic-ischaemic encephalopathy [Recovered/Resolved with Sequelae]
  - Developmental delay [Unknown]
